FAERS Safety Report 7145025-0 (Version None)
Quarter: 2010Q4

REPORT INFORMATION
  Report Type: 
  Country: None (occurrence: None)
  Receive Date: 20101208
  Receipt Date: 20101201
  Transmission Date: 20110411
  Serious: Yes (Death)
  Sender: FDA-Public Use
  Company Number: US-US-EMD SERONO, INC.-235372J09USA

PATIENT
  Sex: Female

DRUGS (2)
  1. REBIF [Suspect]
     Indication: MULTIPLE SCLEROSIS
     Route: 058
     Dates: start: 20030602
  2. REBIF [Suspect]
     Route: 058
     Dates: start: 20091101

REACTIONS (3)
  - RASH PRURITIC [None]
  - STAPHYLOCOCCAL INFECTION [None]
  - URTICARIA [None]
